FAERS Safety Report 5683953-3 (Version None)
Quarter: 2008Q1

REPORT INFORMATION
  Report Type: 
  Country: None (occurrence: None)
  Receive Date: 20080328
  Receipt Date: 20080320
  Transmission Date: 20080703
  Serious: Yes (Hospitalization, Other)
  Sender: FDA-Public Use
  Company Number: PHHY2008BR03423

PATIENT
  Age: 6 Year
  Sex: Male
  Weight: 27 kg

DRUGS (8)
  1. TEGRETOL [Suspect]
     Indication: EPILEPSY
     Dosage: 5ML AM, 5ML PM
     Route: 048
     Dates: start: 20050101
  2. DOGMATIL [Concomitant]
     Indication: CONVULSION
     Dosage: 27 DROPS DAILY
     Route: 048
     Dates: start: 20050101
  3. RIVOTRIL [Concomitant]
     Indication: CONVULSION
     Dosage: 27 DRPOS DAILY
     Route: 048
     Dates: start: 20050101, end: 20080312
  4. FUROSEMIDE [Concomitant]
     Indication: HYPERTENSION
     Dosage: 40 MG, BID
     Route: 048
     Dates: start: 20050101
  5. NEOZINE [Concomitant]
     Indication: CONVULSION
     Dosage: 27 DROPS, TID
     Route: 048
     Dates: start: 20050101, end: 20080219
  6. CAPTOPRIL [Concomitant]
     Indication: HYPERTENSION
     Dosage: 25 MG, BID
     Route: 048
     Dates: start: 20050101
  7. MELLARIL [Suspect]
     Indication: CONVULSION
     Dosage: UNK, QD
     Route: 048
     Dates: end: 20080219
  8. ROCEPHIN [Suspect]

REACTIONS (21)
  - ALOPECIA [None]
  - CARDIAC ARREST [None]
  - CATARACT [None]
  - CONVULSION [None]
  - COUGH [None]
  - DENGUE FEVER [None]
  - DISEASE PROGRESSION [None]
  - DYSURIA [None]
  - GASTRIC LAVAGE [None]
  - GASTRIC ULCER [None]
  - HAEMORRHAGE [None]
  - HEAD BANGING [None]
  - LIP DRY [None]
  - NEUROPATHY PERIPHERAL [None]
  - PYREXIA [None]
  - SKIN ULCER [None]
  - SLEEP DISORDER [None]
  - SWELLING [None]
  - TREMOR [None]
  - URINARY RETENTION [None]
  - VISUAL DISTURBANCE [None]
